FAERS Safety Report 9083899 (Version 1)
Quarter: 2013Q1

REPORT INFORMATION
  Report Type: Spontaneous
  Country: CL (occurrence: CL)
  Receive Date: 20130131
  Receipt Date: 20130131
  Transmission Date: 20140127
  Serious: Yes (Other)
  Sender: FDA-Public Use
  Company Number: CL-INCYTE CORPORATION-2013IN000148

PATIENT
  Age: 65 Year
  Sex: Female
  Weight: 59 kg

DRUGS (1)
  1. JAKAVI [Suspect]
     Indication: MYELOFIBROSIS
     Dosage: 15 MG, BID
     Route: 048
     Dates: start: 20121121

REACTIONS (1)
  - Blast cells present [Unknown]
